FAERS Safety Report 8355141 (Version 3)
Quarter: 2013Q3

REPORT INFORMATION
  Report Type: Spontaneous
  Country: US (occurrence: US)
  Receive Date: 20120126
  Receipt Date: 20130715
  Transmission Date: 20140515
  Serious: No
  Sender: FDA-Public Use
  Company Number: US-BIOGENIDEC-2012BI002543

PATIENT
  Age: 32 Year
  Sex: Male

DRUGS (1)
  1. TYSABRI [Suspect]
     Indication: MULTIPLE SCLEROSIS
     Route: 042
     Dates: start: 20101014

REACTIONS (5)
  - Rash [Not Recovered/Not Resolved]
  - Myalgia [Recovered/Resolved]
  - Incorrect drug administration rate [Unknown]
  - Rash erythematous [Recovered/Resolved]
  - Arthralgia [Recovered/Resolved]
